FAERS Safety Report 16943964 (Version 2)
Quarter: 2019Q4

REPORT INFORMATION
  Report Type: Spontaneous
  Country: US (occurrence: US)
  Receive Date: 20191022
  Receipt Date: 20191216
  Transmission Date: 20200122
  Serious: Yes (Other)
  Sender: FDA-Public Use
  Company Number: US-SA-2019SA072881

PATIENT
  Age: 68 Year
  Sex: Male

DRUGS (2)
  1. PRALUENT [Suspect]
     Active Substance: ALIROCUMAB
     Dosage: 75 MG/ML, QOW
     Route: 058
  2. PRALUENT [Suspect]
     Active Substance: ALIROCUMAB
     Indication: DYSLIPIDAEMIA
     Dosage: 150 MG, QOW
     Route: 058
     Dates: start: 2017

REACTIONS (5)
  - Gait disturbance [Unknown]
  - Arthritis [Unknown]
  - Cardiac failure [Unknown]
  - Blood cholesterol decreased [Unknown]
  - Transient ischaemic attack [Unknown]
